FAERS Safety Report 7354013-0 (Version None)
Quarter: 2011Q1

REPORT INFORMATION
  Report Type: 
  Country: None (occurrence: None)
  Receive Date: 20110315
  Receipt Date: 20110309
  Transmission Date: 20110831
  Serious: Yes (Death)
  Sender: FDA-Public Use
  Company Number: PHHY2010JP80188

PATIENT
  Sex: Female

DRUGS (3)
  1. EXJADE [Suspect]
     Indication: IRON OVERLOAD
     Dosage: 500 MG, QD
     Route: 048
     Dates: start: 20090226
  2. CYTOTEC [Concomitant]
     Indication: APLASIA PURE RED CELL
     Dosage: 300 UG, QD
     Route: 048
     Dates: start: 20090120, end: 20090929
  3. BIO THREE [Concomitant]
     Dosage: UNK
     Route: 048
     Dates: start: 20090120, end: 20090929

REACTIONS (1)
  - PNEUMONIA [None]
